FAERS Safety Report 9396293 (Version 3)
Quarter: 2013Q3

REPORT INFORMATION
  Report Type: Spontaneous
  Country: BE (occurrence: None)
  Receive Date: 20130701
  Receipt Date: 20130917
  Transmission Date: 20140515
  Serious: Yes (Other)
  Sender: FDA-Public Use
  Company Number: 2013036724

PATIENT
  Age: 38 Year
  Sex: Male

DRUGS (1)
  1. SANDOGLOBULIN [Suspect]
     Indication: MILLER FISHER SYNDROME
     Dosage: INTRAVENOUS (NOT OTHERWISE SPECIFIED)
     Route: 042
     Dates: start: 20130612, end: 20130616

REACTIONS (8)
  - Suspected transmission of an infectious agent via product [None]
  - Bacterial sepsis [None]
  - Injection site thrombosis [None]
  - Lymphangitis [None]
  - Pyrexia [None]
  - Chills [None]
  - Chest X-ray abnormal [None]
  - Aeromonas test positive [None]
